FAERS Safety Report 9455434 (Version 6)
Quarter: 2014Q1

REPORT INFORMATION
  Report Type: Spontaneous
  Country: JP (occurrence: JP)
  Receive Date: 20130813
  Receipt Date: 20140206
  Transmission Date: 20141002
  Serious: Yes (Death, Other)
  Sender: FDA-Public Use
  Company Number: PHHY2013JP086446

PATIENT
  Age: 87 Year
  Sex: Female
  Weight: 52 kg

DRUGS (10)
  1. DIOVAN [Suspect]
     Indication: HYPERTENSION
     Dosage: 40 MG, DAILY
     Route: 048
     Dates: start: 20030331, end: 20060120
  2. DIOVAN [Suspect]
     Dosage: 20 MG, DAILY
     Route: 048
     Dates: start: 20060121, end: 20130702
  3. EUGLUCON [Concomitant]
     Indication: DIABETES MELLITUS
     Dosage: 3.75 MG, UNK
     Route: 048
     Dates: start: 19970118, end: 20111223
  4. NORVASC [Concomitant]
     Indication: HYPERTENSION
     Dosage: 5 MG, UNK
     Route: 048
     Dates: start: 20010117, end: 20130702
  5. BASEN [Concomitant]
     Indication: DIABETES MELLITUS
     Dosage: 0.9 MG, UNK
     Route: 048
     Dates: start: 20041001, end: 20130702
  6. ARTIST [Concomitant]
     Indication: HYPERTENSION
     Dosage: 2.5 MG, UNK
     Route: 048
     Dates: start: 20070919, end: 20130702
  7. TAKEPRON [Concomitant]
     Indication: GASTROOESOPHAGEAL REFLUX DISEASE
     Dosage: 15 MG, UNK
     Route: 048
     Dates: start: 20101224, end: 20130702
  8. CLARITH [Concomitant]
     Indication: UPPER RESPIRATORY TRACT INFLAMMATION
     Dosage: 400 MG, UNK
     Route: 048
     Dates: start: 20130302, end: 20130310
  9. MUCODYNE [Concomitant]
     Indication: UPPER RESPIRATORY TRACT INFLAMMATION
     Dosage: 1500 MG, UNK
     Route: 048
     Dates: start: 20130302, end: 20130310
  10. BISOLVON [Concomitant]
     Indication: UPPER RESPIRATORY TRACT INFLAMMATION
     Dosage: 12 MG, UNK
     Route: 048
     Dates: start: 20130306, end: 20130313

REACTIONS (10)
  - Squamous cell carcinoma [Fatal]
  - Genital ulceration [Fatal]
  - Pemphigoid [Recovering/Resolving]
  - Blister [Recovering/Resolving]
  - Gastrooesophageal reflux disease [Not Recovered/Not Resolved]
  - Upper respiratory tract inflammation [Recovered/Resolved]
  - Drug eruption [Unknown]
  - Scab [Unknown]
  - Pigmentation disorder [Unknown]
  - Incorrect dose administered [Unknown]
